FAERS Safety Report 5120292-3 (Version None)
Quarter: 2006Q4

REPORT INFORMATION
  Report Type: 
  Country: None (occurrence: None)
  Receive Date: 20061004
  Receipt Date: 20060629
  Transmission Date: 20070319
  Serious: Yes (Other)
  Sender: FDA-Public Use
  Company Number: FR-BAYER-200610640BFR

PATIENT
  Age: 76 Year
  Sex: Male
  Weight: 84 kg

DRUGS (9)
  1. NEXAVAR [Suspect]
     Indication: METASTATIC RENAL CELL CARCINOMA
     Dosage: TOTAL DAILY DOSE: 800 MG  UNIT DOSE: 400 MG
     Route: 048
     Dates: start: 20060609, end: 20060601
  2. NEXAVAR [Suspect]
     Dosage: TOTAL DAILY DOSE: 800 MG  UNIT DOSE: 400 MG
     Route: 048
     Dates: start: 20060601
  3. NEXAVAR [Suspect]
     Dosage: TOTAL DAILY DOSE: 600 MG  UNIT DOSE: 600 MG
     Route: 048
  4. AMLOR [Concomitant]
     Indication: HYPERTENSION
     Route: 048
     Dates: start: 19960101
  5. HYPERIUM [Concomitant]
     Indication: HYPERTENSION
     Route: 048
     Dates: start: 20060701
  6. OMEPRAZOLE [Concomitant]
     Indication: DYSPEPSIA
     Route: 048
     Dates: start: 20050301
  7. GAVISCON [Concomitant]
     Indication: DYSPEPSIA
     Route: 048
     Dates: start: 20050301
  8. CASODEX [Concomitant]
     Indication: PROSTATE CANCER
     Route: 048
     Dates: start: 20030101
  9. DECAPEPTYL [Concomitant]
     Indication: PROSTATE CANCER
     Route: 058
     Dates: start: 20010101

REACTIONS (4)
  - DRUG ERUPTION [None]
  - HYPERTENSION [None]
  - MUCOSAL EROSION [None]
  - URTICARIA [None]
